FAERS Safety Report 4448133-8 (Version None)
Quarter: 2004Q3

REPORT INFORMATION
  Report Type: 
  Country: None (occurrence: None)
  Receive Date: 20040913
  Receipt Date: 20040909
  Transmission Date: 20050211
  Serious: Yes (Hospitalization, Other)
  Sender: FDA-Public Use
  Company Number: AU-BRISTOL-MYERS SQUIBB COMPANY-12697322

PATIENT
  Age: 68 Year
  Sex: Male

DRUGS (9)
  1. IFOSFAMIDE [Suspect]
     Indication: LYMPHOMA
     Dates: start: 20040803, end: 20040803
  2. GEMZAR [Suspect]
     Indication: LYMPHOMA
     Route: 042
     Dates: start: 20040803, end: 20040803
  3. VINORELBINE TARTRATE [Suspect]
     Indication: LYMPHOMA
     Dates: start: 20040803, end: 20040803
  4. PEGFILGRASTIM [Suspect]
     Indication: LYMPHOMA
     Dates: start: 20040811, end: 20040811
  5. MESNA [Concomitant]
     Dates: start: 20040803
  6. DEXAMETHASONE [Concomitant]
     Dates: start: 20040803
  7. LEVODOPA [Concomitant]
     Indication: PARKINSON'S DISEASE
  8. CARBIDOPA [Concomitant]
     Indication: PARKINSON'S DISEASE
  9. ATORVASTATIN CALCIUM [Concomitant]
     Indication: HYPERCHOLESTEROLAEMIA

REACTIONS (3)
  - ABDOMINAL PAIN UPPER [None]
  - NEUTROPENIA [None]
  - STAPHYLOCOCCAL INFECTION [None]
